FAERS Safety Report 4866002-6 (Version None)
Quarter: 2005Q4

REPORT INFORMATION
  Report Type: 
  Country: None (occurrence: None)
  Receive Date: 20051221
  Receipt Date: 20051205
  Transmission Date: 20060501
  Serious: Yes (Other)
  Sender: FDA-Public Use
  Company Number: 200511149BVD

PATIENT
  Sex: Female

DRUGS (1)
  1. MOXIFLOXACIN HCL [Suspect]

REACTIONS (3)
  - ANGINA PECTORIS [None]
  - COLD SWEAT [None]
  - URINARY RETENTION [None]
